FAERS Safety Report 7245490-4 (Version None)
Quarter: 2011Q1

REPORT INFORMATION
  Report Type: 
  Country: None (occurrence: None)
  Receive Date: 20110126
  Receipt Date: 20110112
  Transmission Date: 20110831
  Serious: Yes (Hospitalization)
  Sender: FDA-Public Use
  Company Number: US-ELI_LILLY_AND_COMPANY-US201009000247

PATIENT
  Sex: Female
  Weight: 95.238 kg

DRUGS (15)
  1. FORTEO [Suspect]
     Indication: OSTEOPOROSIS
     Dosage: 20 UG, DAILY (1/D)
     Dates: start: 20090702
  2. ALIGN [Concomitant]
  3. PREDNISONE [Concomitant]
     Dosage: 2 MG, TU/THUR/SAT/SUN
  4. PRILOSEC [Concomitant]
     Dosage: 20 MG, UNK
  5. MULTI-VITAMINS [Concomitant]
     Dosage: UNK, DAILY (1/D)
  6. ACETYLSALICYLIC ACID SRT [Concomitant]
     Dosage: 81 MG, UNK
  7. VIT C [Concomitant]
     Dosage: 1000 D/F, DAILY (1/D)
  8. VIT D [Concomitant]
     Dosage: 50000 IU, WEEKLY (1/W) AS NEEDED
  9. MOBIC [Concomitant]
     Dosage: 50 MG, DAILY (1/D)
  10. CALTRATE [Concomitant]
     Dosage: 600 D/F, DAILY (1/D)
  11. PROZAC [Concomitant]
     Dosage: 20 MG, DAILY (1/D)
  12. BONIVA [Concomitant]
     Dosage: UNK, MONTHLY (1/M)
  13. TYLENOL (CAPLET) [Concomitant]
     Indication: PAIN
     Dosage: UNK, AS NEEDED
  14. PREDNISONE [Concomitant]
     Dosage: 5 MG, M, W, F
  15. ZYRTEC [Concomitant]
     Dosage: UNK, DAILY (1/D)

REACTIONS (6)
  - INJECTION SITE ERYTHEMA [None]
  - MEDICATION ERROR [None]
  - NEPHROLITHIASIS [None]
  - MALAISE [None]
  - INJECTION SITE HAEMATOMA [None]
  - DIVERTICULITIS [None]
